FAERS Safety Report 6157608-5 (Version None)
Quarter: 2009Q2

REPORT INFORMATION
  Report Type: 
  Country: None (occurrence: None)
  Receive Date: 20090414
  Receipt Date: 20090407
  Transmission Date: 20091009
  Serious: Yes (Death, Hospitalization, Other)
  Sender: FDA-Public Use
  Company Number: 2009SP003967

PATIENT
  Age: 52 Year
  Sex: Male

DRUGS (1)
  1. PEG-INTRON [Suspect]
     Indication: HEPATITIS C
     Dosage: SC
     Route: 058
     Dates: start: 20080101, end: 20090101

REACTIONS (3)
  - IDIOPATHIC THROMBOCYTOPENIC PURPURA [None]
  - RENAL FAILURE [None]
  - SEPSIS [None]
